FAERS Safety Report 4338248-7 (Version None)
Quarter: 2004Q2

REPORT INFORMATION
  Report Type: 
  Country: None (occurrence: None)
  Receive Date: 20040409
  Receipt Date: 20040329
  Transmission Date: 20050107
  Serious: Yes (Hospitalization)
  Sender: FDA-Public Use
  Company Number: FR-JNJFOC-20040306336

PATIENT
  Age: 64 Year
  Sex: Female
  Weight: 57 kg

DRUGS (3)
  1. REMICADE [Suspect]
     Indication: ANKYLOSING SPONDYLITIS
     Dosage: 275 MG, INTRAVENOUS
     Route: 042
     Dates: start: 20031113
  2. NOROXIN [Concomitant]
  3. PROPOFAN (PROPOFAN) TABLETS [Concomitant]

REACTIONS (3)
  - BACTERIURIA [None]
  - CYSTITIS NONINFECTIVE [None]
  - POLLAKIURIA [None]
